FAERS Safety Report 9735571 (Version 1)
Quarter: 2013Q4

REPORT INFORMATION
  Report Type: Spontaneous
  Country: US (occurrence: US)
  Receive Date: 20131206
  Receipt Date: 20131206
  Transmission Date: 20140711
  Serious: No
  Sender: FDA-Public Use
  Company Number: US-GILEAD-2009-0023974

PATIENT
  Sex: Male
  Weight: 127.91 kg

DRUGS (23)
  1. LETAIRIS [Suspect]
     Indication: PULMONARY ARTERIAL HYPERTENSION
     Route: 048
     Dates: start: 20090303
  2. COUMADIN [Concomitant]
  3. VIAGRA [Concomitant]
  4. FUROSEMIDE [Concomitant]
  5. LISINOPRIL [Concomitant]
  6. METOPROLOL [Concomitant]
  7. IPRATROPIUM BROMIDE [Concomitant]
  8. FORMOTEROL FUMARATE [Concomitant]
  9. SIMVASTATIN [Concomitant]
  10. LIBRAX [Concomitant]
  11. FOLIC ACID [Concomitant]
  12. FLEXERIL [Concomitant]
  13. LORTADINE [Concomitant]
  14. SUCRALFATE [Concomitant]
  15. TIZANIDINE HCL [Concomitant]
  16. DIPHENOXYLATE/ATROP [Concomitant]
  17. METOCLOPRAMIDE [Concomitant]
  18. LEVOTHYROXINE [Concomitant]
  19. LOPERAMIDE [Concomitant]
  20. PROVIGIL [Concomitant]
  21. MORPHINE [Concomitant]
  22. POLYETHYLENE GLY [Concomitant]
  23. RANITIDINE [Concomitant]

REACTIONS (5)
  - Feeling cold [Unknown]
  - Nasal congestion [Unknown]
  - Local swelling [Unknown]
  - Anaemia [Unknown]
  - Hot flush [Unknown]
